FAERS Safety Report 7412656-X (Version None)
Quarter: 2011Q2

REPORT INFORMATION
  Report Type: 
  Country: None (occurrence: None)
  Receive Date: 20110413
  Receipt Date: 20110407
  Transmission Date: 20111010
  Serious: No
  Sender: FDA-Public Use
  Company Number: US-PFIZER INC-2011060449

PATIENT
  Sex: Male
  Weight: 88.435 kg

DRUGS (2)
  1. ADVIL CONGESTION RELIEF [Suspect]
     Indication: SINUS DISORDER
     Dosage: 10 MG, DAILY
     Route: 048
     Dates: start: 20110301, end: 20110301
  2. ADVIL CONGESTION RELIEF [Suspect]
     Indication: SEASONAL ALLERGY

REACTIONS (1)
  - DRUG INEFFECTIVE [None]
